FAERS Safety Report 19585785 (Version 4)
Quarter: 2021Q3

REPORT INFORMATION
  Report Type: Spontaneous
  Country: CA (occurrence: CA)
  Receive Date: 20210720
  Receipt Date: 20210901
  Transmission Date: 20211014
  Serious: Yes (Other)
  Sender: FDA-Public Use
  Company Number: CA-PFIZER INC-2021886556

PATIENT
  Age: 27 Year
  Sex: Female

DRUGS (5)
  1. METHOTREXATE SODIUM. [Suspect]
     Active Substance: METHOTREXATE SODIUM
     Dosage: 25 MG
     Route: 058
     Dates: start: 201808
  2. PREDNISONE ACETATE [Concomitant]
     Active Substance: PREDNISONE ACETATE
     Dosage: UNK, 1X/DAY
     Route: 048
     Dates: start: 201808
  3. CELLCEPT [Concomitant]
     Active Substance: MYCOPHENOLATE MOFETIL\MYCOPHENOLATE MOFETIL HYDROCHLORIDE
     Dosage: 3 G
     Dates: start: 202104
  4. IMMUNE GLOBULIN [Concomitant]
     Dosage: 2G/KG, UKN
     Dates: start: 202102
  5. PLAQUENIL S [Concomitant]
     Active Substance: HYDROXYCHLOROQUINE SULFATE
     Dosage: 400 MG, 1X/DAY
     Route: 048
     Dates: start: 201808

REACTIONS (6)
  - Sinusitis [Recovered/Resolved]
  - Dermatomyositis [Unknown]
  - Illness [Unknown]
  - Loss of personal independence in daily activities [Unknown]
  - Drug ineffective [Unknown]
  - Tenosynovitis [Unknown]

NARRATIVE: CASE EVENT DATE: 20210708
